FAERS Safety Report 5058965-3 (Version None)
Quarter: 2006Q3

REPORT INFORMATION
  Report Type: 
  Country: None (occurrence: None)
  Receive Date: 20060721
  Receipt Date: 20060421
  Transmission Date: 20061208
  Serious: Yes (Disabling)
  Sender: FDA-Public Use
  Company Number: JP-SANOFI-SYNTHELABO-F01200601088

PATIENT
  Sex: Female
  Weight: 78 kg

DRUGS (3)
  1. CALCIUM LEVOFOLINATE [Suspect]
     Route: 042
     Dates: start: 20050930, end: 20051001
  2. FLUOROURACIL [Suspect]
     Dosage: 400 MG (226. MG/M2 ) IV BOLUS FOLLOWED 600 MG (339 MG/M2) INFUSION ON D1+2
     Route: 042
     Dates: start: 20050930, end: 20051001
  3. OXALIPLATIN [Suspect]
     Indication: COLON CANCER
     Route: 042
     Dates: start: 20050930, end: 20050930

REACTIONS (2)
  - BLOOD CREATININE INCREASED [None]
  - RENAL FAILURE ACUTE [None]
